FAERS Safety Report 4986976-2 (Version None)
Quarter: 2006Q2

REPORT INFORMATION
  Report Type: 
  Country: None (occurrence: None)
  Receive Date: 20060501
  Receipt Date: 20060419
  Transmission Date: 20061013
  Serious: Yes (Hospitalization, Other)
  Sender: FDA-Public Use
  Company Number: JP-BRISTOL-MYERS SQUIBB COMPANY-13353396

PATIENT
  Age: 69 Year
  Sex: Male

DRUGS (4)
  1. HYDREA [Suspect]
     Indication: POLYCYTHAEMIA VERA
     Route: 048
  2. DIART [Concomitant]
     Route: 048
  3. NORVASC [Concomitant]
     Route: 048
  4. WARFARIN SODIUM [Concomitant]
     Route: 048

REACTIONS (3)
  - CELLULITIS [None]
  - SKIN ULCER [None]
  - TUMOUR NECROSIS [None]
